FAERS Safety Report 6167616-6 (Version None)
Quarter: 2009Q2

REPORT INFORMATION
  Report Type: 
  Country: None (occurrence: None)
  Receive Date: 20090424
  Receipt Date: 20090414
  Transmission Date: 20091009
  Serious: Yes (Other)
  Sender: FDA-Public Use
  Company Number: GB-B.I. PHARMACEUTICALS,INC./RIDGEFIELD-2009-UK-00332UK

PATIENT
  Age: 45 Year

DRUGS (11)
  1. VIRAMUNE [Suspect]
  2. LOPINAVIR/RITONAVIR (TPV/RTV REFERENCE) [Suspect]
  3. LAMIVUDINE [Suspect]
  4. AMPRENAVIR/RITONAVIR [Suspect]
  5. STAVUDINE [Suspect]
  6. VIDEX [Suspect]
  7. ATORVASTATIN [Concomitant]
     Dosage: 20MG
  8. EZETIMIBE [Concomitant]
     Dosage: 10MG
  9. FENOFIBRATE [Concomitant]
  10. FLUVASTATIN SODIUM [Concomitant]
  11. OMEGA-3-ACID ETHYL ESTERS [Concomitant]
     Dosage: 2DF 2/1 DAYS

REACTIONS (3)
  - BLOOD CHOLESTEROL INCREASED [None]
  - LIPODYSTROPHY ACQUIRED [None]
  - MYOCARDIAL INFARCTION [None]
